FAERS Safety Report 10057507 (Version 2)
Quarter: 2014Q2

REPORT INFORMATION
  Report Type: Spontaneous
  Country: TR (occurrence: TR)
  Receive Date: 20140403
  Receipt Date: 20140508
  Transmission Date: 20141212
  Serious: Yes (Other)
  Sender: FDA-Public Use
  Company Number: TR-VERTEX PHARMACEUTICALS INC-2014-001773

PATIENT
  Age: 54 Year
  Sex: Female

DRUGS (4)
  1. INCIVEK [Suspect]
     Indication: CHRONIC HEPATITIS C
     Route: 048
  2. INCIVEK [Suspect]
     Indication: HEPATITIS C
  3. RIBAVIRIN [Suspect]
     Indication: CHRONIC HEPATITIS C
  4. PEGINTERFERON ALFA [Suspect]
     Indication: CHRONIC HEPATITIS C

REACTIONS (3)
  - Anorectal disorder [Unknown]
  - Leukopenia [Unknown]
  - Anaemia [Unknown]
